FAERS Safety Report 9102611 (Version 3)
Quarter: 2013Q4

REPORT INFORMATION
  Report Type: Spontaneous
  Country: US (occurrence: US)
  Receive Date: 20130219
  Receipt Date: 20131218
  Transmission Date: 20140711
  Serious: Yes (Hospitalization, Disabling, Other)
  Sender: FDA-Public Use
  Company Number: US-009507513-1302USA006742

PATIENT
  Sex: Female
  Weight: 117.91 kg

DRUGS (1)
  1. NUVARING [Suspect]
     Indication: CONTRACEPTION
     Dosage: UNK
     Route: 067
     Dates: start: 200511, end: 20070610

REACTIONS (11)
  - Anxiety [Not Recovered/Not Resolved]
  - Pulmonary embolism [Recovered/Resolved]
  - Coagulopathy [Unknown]
  - Chest pain [Not Recovered/Not Resolved]
  - Pulmonary mass [Not Recovered/Not Resolved]
  - Post-traumatic stress disorder [Not Recovered/Not Resolved]
  - Depression [Not Recovered/Not Resolved]
  - Migraine [Unknown]
  - Metrorrhagia [Unknown]
  - Vaginal laceration [Unknown]
  - Vaginal haemorrhage [Unknown]
